FAERS Safety Report 8393306-5 (Version None)
Quarter: 2012Q2

REPORT INFORMATION
  Report Type: 
  Country: None (occurrence: None)
  Receive Date: 20120529
  Receipt Date: 20120517
  Transmission Date: 20120825
  Serious: Yes (Hospitalization)
  Sender: FDA-Public Use
  Company Number: CA-ELI_LILLY_AND_COMPANY-CA201205006484

PATIENT
  Age: 53 Year
  Sex: Male

DRUGS (10)
  1. FORTEO [Suspect]
     Indication: OSTEOPOROSIS
     Dosage: 20 UG, QD
     Route: 058
     Dates: start: 20110616
  2. QUETIAPINE [Concomitant]
  3. RABEPRAZOLE SODIUM [Concomitant]
  4. VOLTAREN                                /SCH/ [Concomitant]
  5. VITAMIN D [Concomitant]
  6. NADOLOL [Concomitant]
  7. ZINC SULFATE [Concomitant]
  8. OXYCODONE HCL [Concomitant]
  9. LORAZEPAM [Concomitant]
  10. CALCIUM [Concomitant]

REACTIONS (1)
  - HOSPITALISATION [None]
